FAERS Safety Report 5810072-5 (Version None)
Quarter: 2008Q3

REPORT INFORMATION
  Report Type: 
  Country: None (occurrence: None)
  Receive Date: 20080715
  Receipt Date: 20080710
  Transmission Date: 20090109
  Serious: Yes (Other)
  Sender: FDA-Public Use
  Company Number: B0524298A

PATIENT
  Age: 92 Year
  Sex: Female

DRUGS (1)
  1. PAXIL [Suspect]
     Indication: DEPRESSION
     Route: 048
     Dates: start: 20080521, end: 20080604

REACTIONS (2)
  - ENCEPHALOPATHY [None]
  - REFLEXES ABNORMAL [None]
